FAERS Safety Report 6887594-1 (Version None)
Quarter: 2010Q3

REPORT INFORMATION
  Report Type: 
  Country: None (occurrence: None)
  Receive Date: 20100730
  Receipt Date: 20100713
  Transmission Date: 20110219
  Serious: Yes (Hospitalization, Other)
  Sender: FDA-Public Use
  Company Number: IE-MEDIMMUNE-MEDI-0010141

PATIENT
  Sex: Male

DRUGS (3)
  1. SYNAGIS [Suspect]
     Route: 030
     Dates: start: 20100111, end: 20100111
  2. SYNAGIS [Suspect]
     Route: 030
     Dates: start: 20100209, end: 20100309
  3. KAPSOVIT [Concomitant]

REACTIONS (2)
  - MECHANICAL VENTILATION [None]
  - RESPIRATORY SYNCYTIAL VIRUS INFECTION [None]
